FAERS Safety Report 9051030 (Version 1)
Quarter: 2013Q1

REPORT INFORMATION
  Report Type: Spontaneous
  Country: IE (occurrence: IE)
  Receive Date: 20130205
  Receipt Date: 20130205
  Transmission Date: 20140127
  Serious: Yes (Hospitalization)
  Sender: FDA-Public Use
  Company Number: IE-MILLENNIUM PHARMACEUTICALS, INC.-2013-00820

PATIENT
  Sex: 0

DRUGS (12)
  1. VELCADE [Suspect]
     Indication: PLASMA CELL MYELOMA
     Dosage: 1.8 MG/M2, CYCLIC
     Route: 042
     Dates: start: 20100805
  2. XANAX [Concomitant]
     Dosage: 0.25 MG, BID
  3. CARDICOR [Concomitant]
     Dosage: 5 MG, UNK
  4. VALTREX [Concomitant]
     Dosage: 500 MG, BID
  5. PANADOL                            /00020001/ [Concomitant]
     Dosage: UNK, PRN
  6. ELTROXIN [Concomitant]
  7. HYDROCORTISONE [Concomitant]
     Route: 061
  8. LIPITOR [Concomitant]
  9. MYCOSTATIN                         /00036501/ [Concomitant]
  10. DEXAMETHASONE [Concomitant]
     Dosage: 20 MG, UNK
  11. LOSEC                              /00661201/ [Concomitant]
  12. INNOHEP                            /00889602/ [Concomitant]
     Route: 058

REACTIONS (1)
  - Chest discomfort [Not Recovered/Not Resolved]
